FAERS Safety Report 9937152 (Version 1)
Quarter: 2014Q1

REPORT INFORMATION
  Report Type: Spontaneous
  Country: FR (occurrence: FR)
  Receive Date: 20140301
  Receipt Date: 20140301
  Transmission Date: 20141002
  Serious: Yes (Death, Hospitalization)
  Sender: FDA-Public Use
  Company Number: PHHY2014FR021449

PATIENT
  Age: 59 Year
  Sex: Female

DRUGS (3)
  1. OXALIPLATIN [Suspect]
     Indication: ADENOCARCINOMA OF COLON
     Dosage: 460 MG/M2, UNK
  2. LEUCOVORIN [Concomitant]
     Route: 042
  3. 5-FU [Concomitant]
     Route: 042

REACTIONS (15)
  - Histiocytosis haematophagic [Fatal]
  - Thrombocytopenia [Fatal]
  - Haemorrhage [Fatal]
  - Pyrexia [Fatal]
  - Anastomotic ulcer haemorrhage [Fatal]
  - Hepatic haematoma [Fatal]
  - Splenomegaly [Fatal]
  - Pulmonary alveolar haemorrhage [Fatal]
  - Ascites [Fatal]
  - Multi-organ failure [Unknown]
  - Enterococcal infection [Unknown]
  - Staphylococcal infection [Unknown]
  - Sepsis [Unknown]
  - Shock haemorrhagic [Unknown]
  - Acute respiratory distress syndrome [Unknown]
